FAERS Safety Report 7752822-7 (Version None)
Quarter: 2011Q3

REPORT INFORMATION
  Report Type: 
  Country: None (occurrence: None)
  Receive Date: 20110915
  Receipt Date: 20110906
  Transmission Date: 20111222
  Serious: Yes (Other)
  Sender: FDA-Public Use
  Company Number: PHHY2011BR80305

PATIENT
  Age: 66 Year
  Sex: Female

DRUGS (8)
  1. SERTRALINE HYDROCHLORIDE [Concomitant]
     Indication: ANXIETY
     Dosage: 50 MG ,1 DF
     Route: 048
  2. BUSPIRONE HYDROCHLORIDE [Concomitant]
     Indication: NERVOUSNESS
     Dosage: 10 MG, TID
  3. TEGRETOL [Suspect]
     Indication: ARRHYTHMIA
     Dosage: 200 MG, QHS
     Route: 048
  4. SERTRALINE HYDROCHLORIDE [Concomitant]
     Dosage: 50 MG, 2 DF
  5. PHENYTOIN [Concomitant]
     Dosage: 1 TABLET IN THE MORNING
     Route: 048
  6. LOSARTAN POTASSIUM AND HYDROCHLOROTHIAZIDE [Concomitant]
     Dosage: 50 MG LOSARTAN/12 MG HYDROCHLOROTHIAZIDE
  7. TONOPAN [Suspect]
     Indication: HEADACHE
     Dosage: UNK UKN, UNK
     Route: 048
     Dates: start: 19770101
  8. CLONAZEPAM [Concomitant]
     Indication: SLEEP DISORDER
     Dosage: 0.5 MG, QD

REACTIONS (3)
  - NERVOUSNESS [None]
  - HEART RATE INCREASED [None]
  - HEADACHE [None]
